FAERS Safety Report 13417585 (Version 2)
Quarter: 2017Q2

REPORT INFORMATION
  Report Type: Spontaneous
  Country: FR (occurrence: FR)
  Receive Date: 20170407
  Receipt Date: 20170505
  Transmission Date: 20170830
  Serious: Yes (Hospitalization)
  Sender: FDA-Public Use
  Company Number: FR-009507513-1703FRA014658

PATIENT
  Age: 72 Year
  Sex: Male

DRUGS (2)
  1. STALEVO [Suspect]
     Active Substance: CARBIDOPA\ENTACAPONE\LEVODOPA
     Indication: PROGRESSIVE SUPRANUCLEAR PALSY
     Dosage: 800 MG (200 MG, 4 IN 1 DAY(S))
     Route: 048
     Dates: start: 201609
  2. SINEMET [Suspect]
     Active Substance: CARBIDOPA\LEVODOPA
     Indication: PROGRESSIVE SUPRANUCLEAR PALSY
     Dosage: 400 MG (100 MG, 4 IN 1 DAY)
     Route: 048
     Dates: start: 201609

REACTIONS (2)
  - Frontotemporal dementia [Unknown]
  - Compulsive sexual behaviour [Unknown]

NARRATIVE: CASE EVENT DATE: 201701
